FAERS Safety Report 6113894-9 (Version None)
Quarter: 2009Q1

REPORT INFORMATION
  Report Type: 
  Country: None (occurrence: None)
  Receive Date: 20090312
  Receipt Date: 20080917
  Transmission Date: 20090719
  Serious: No
  Sender: FDA-Public Use
  Company Number: US-ABBOTT-08P-163-0467257-00

PATIENT
  Sex: Female
  Weight: 52.21 kg

DRUGS (5)
  1. LUPRON DEPOT [Suspect]
     Indication: ARTIFICIAL MENOPAUSE
     Dosage: FOR 3 INJECTIONS
     Dates: start: 20080424
  2. LUPRON DEPOT [Suspect]
     Indication: UTERINE LEIOMYOMA
  3. LUPRON DEPOT [Suspect]
     Indication: HYSTERECTOMY
  4. LUPRON DEPOT [Suspect]
     Indication: HORMONE THERAPY
  5. NORETHINDRONE ACETATE [Concomitant]
     Indication: MENOPAUSE

REACTIONS (4)
  - GENITAL HAEMORRHAGE [None]
  - HAEMORRHAGE [None]
  - PAIN [None]
  - VAGINAL HAEMORRHAGE [None]
